FAERS Safety Report 25116687 (Version 1)
Quarter: 2025Q1

REPORT INFORMATION
  Report Type: Spontaneous
  Country: US (occurrence: US)
  Receive Date: 20250325
  Receipt Date: 20250325
  Transmission Date: 20250409
  Serious: No
  Sender: SUNOVION
  Company Number: US-MYOVANT SCIENCES GMBH-2024MYSCI0600080

PATIENT

DRUGS (2)
  1. ORGOVYX [Suspect]
     Active Substance: RELUGOLIX
     Indication: Product used for unknown indication
     Route: 065
  2. ORGOVYX [Suspect]
     Active Substance: RELUGOLIX
     Indication: Prostate cancer
     Dosage: UNK, QD, TAKE 1 TABLET BY MOUTH ONCE DAILY AROUND THE SAME TIME EACH DAY
     Route: 048

REACTIONS (3)
  - Abdominal distension [Unknown]
  - Memory impairment [Unknown]
  - Hot flush [Unknown]
